FAERS Safety Report 25503673 (Version 2)
Quarter: 2025Q3

REPORT INFORMATION
  Report Type: Spontaneous
  Country: US (occurrence: US)
  Receive Date: 20250702
  Receipt Date: 20250827
  Transmission Date: 20251020
  Serious: Yes (Hospitalization)
  Sender: ROCHE
  Company Number: US-ROCHE-10000324403

PATIENT
  Age: 55 Year
  Sex: Male

DRUGS (3)
  1. HEMLIBRA [Suspect]
     Active Substance: EMICIZUMAB-KXWH
     Indication: Factor VIII deficiency
     Dosage: FORM STRENGTH: 105 MG/0.7 ML?DOSE AND AMOUNT: 210 MG/1.4 ML
     Route: 058
     Dates: start: 202306
  2. ALTUVIIIO INJ [Concomitant]
  3. JULUCA [Concomitant]
     Active Substance: DOLUTEGRAVIR SODIUM\RILPIVIRINE HYDROCHLORIDE

REACTIONS (4)
  - Haemorrhage [Unknown]
  - Pain [Recovering/Resolving]
  - Nephrolithiasis [Unknown]
  - Adrenocortical insufficiency acute [Unknown]

NARRATIVE: CASE EVENT DATE: 20250609
